FAERS Safety Report 10628876 (Version 1)
Quarter: 2014Q4

REPORT INFORMATION
  Report Type: Spontaneous
  Country: US (occurrence: US)
  Receive Date: 20141205
  Receipt Date: 20141205
  Transmission Date: 20150529
  Serious: No
  Sender: FDA-Public Use
  Company Number: US-BRISTOL-MYERS SQUIBB COMPANY-21560438

PATIENT
  Age: 59 Year
  Sex: Male

DRUGS (15)
  1. PRASUGREL [Concomitant]
     Active Substance: PRASUGREL
  2. LORAZEPAM. [Concomitant]
     Active Substance: LORAZEPAM
  3. ZYRTEC [Concomitant]
     Active Substance: CETIRIZINE HYDROCHLORIDE
  4. OXYCODONE [Concomitant]
     Active Substance: OXYCODONE
  5. TRAZODONE HYDROCHLORIDE. [Concomitant]
     Active Substance: TRAZODONE HYDROCHLORIDE
  6. SPIRIVA [Concomitant]
     Active Substance: TIOTROPIUM BROMIDE MONOHYDRATE
  7. ALBUTEROL SULFATE. [Concomitant]
     Active Substance: ALBUTEROL SULFATE
  8. LOVASTATIN. [Concomitant]
     Active Substance: LOVASTATIN
  9. ACETAMINOPHEN. [Concomitant]
     Active Substance: ACETAMINOPHEN
  10. ASPIRIN. [Concomitant]
     Active Substance: ASPIRIN
  11. FUROSEMIDE. [Concomitant]
     Active Substance: FUROSEMIDE
  12. ONGLYZA [Suspect]
     Active Substance: SAXAGLIPTIN HYDROCHLORIDE
     Route: 048
  13. SPIRONOLACTONE. [Concomitant]
     Active Substance: SPIRONOLACTONE
  14. CARVEDILOL. [Concomitant]
     Active Substance: CARVEDILOL
  15. OXYGEN. [Concomitant]
     Active Substance: OXYGEN

REACTIONS (1)
  - Adverse event [Unknown]
